FAERS Safety Report 14174771 (Version 2)
Quarter: 2019Q4

REPORT INFORMATION
  Report Type: Spontaneous
  Country: US (occurrence: US)
  Receive Date: 20171109
  Receipt Date: 20191107
  Transmission Date: 20200122
  Serious: No
  Sender: FDA-Public Use
  Company Number: US-ALLERGAN-1716615US

PATIENT
  Age: 68 Year
  Sex: Female

DRUGS (2)
  1. ALPHAGAN P [Suspect]
     Active Substance: BRIMONIDINE TARTRATE
     Indication: GLAUCOMA
     Dosage: UNK UNK, BID
     Route: 047
     Dates: start: 201106
  2. XALATAN [Concomitant]
     Active Substance: LATANOPROST
     Indication: GLAUCOMA
     Route: 047

REACTIONS (9)
  - Drug intolerance [Unknown]
  - Intraocular pressure increased [Recovered/Resolved]
  - Erythema of eyelid [Recovered/Resolved]
  - Drug hypersensitivity [Unknown]
  - Erythema [Recovered/Resolved]
  - Pruritus [Recovered/Resolved]
  - Eyelid irritation [Recovered/Resolved]
  - Skin irritation [Recovered/Resolved]
  - Eyelids pruritus [Recovered/Resolved]

NARRATIVE: CASE EVENT DATE: 201110
